FAERS Safety Report 9318951 (Version 1)
Quarter: 2013Q2

REPORT INFORMATION
  Report Type: Spontaneous
  Country: IE (occurrence: None)
  Receive Date: 20130520
  Receipt Date: 20130520
  Transmission Date: 20140414
  Serious: Yes (Other)
  Sender: FDA-Public Use
  Company Number: 2013036009

PATIENT
  Sex: Female

DRUGS (2)
  1. IVIG (IMMUNE GLOBULIN INTRAVENOUS (HUMAN) 10% LIQUID) [Suspect]
     Dosage: COMPLETED AT 24 WEEKS
  2. STEROIDS (CORTICOSTEROIDS) [Suspect]
     Dosage: COMPLETED 14 WEEKS

REACTIONS (10)
  - Cerebral ventricle dilatation [None]
  - Hepatosplenomegaly [None]
  - Thrombocytopenia [None]
  - Congenital toxoplasmosis [None]
  - Maternal drugs affecting foetus [None]
  - Intraventricular haemorrhage neonatal [None]
  - Caesarean section [None]
  - Premature baby [None]
  - Cerebral calcification [None]
  - Cerebral cyst [None]
